FAERS Safety Report 9813712 (Version 2)
Quarter: 2014Q1

REPORT INFORMATION
  Report Type: Spontaneous
  Country: ID (occurrence: ID)
  Receive Date: 20140113
  Receipt Date: 20140113
  Transmission Date: 20141002
  Serious: Yes (Hospitalization, Other)
  Sender: FDA-Public Use
  Company Number: ID-BRISTOL-MYERS SQUIBB COMPANY-19855196

PATIENT
  Age: 65 Year
  Sex: Male
  Weight: 66 kg

DRUGS (1)
  1. ELIQUIS [Suspect]
     Dosage: FOR 5 WEEKS
     Dates: start: 20130925

REACTIONS (2)
  - Hiccups [Recovered/Resolved]
  - Dyspnoea [Recovered/Resolved]
